FAERS Safety Report 8828474 (Version 1)
Quarter: 2012Q4

REPORT INFORMATION
  Report Type: 
  Country: JP (occurrence: JP)
  Receive Date: 20121005
  Receipt Date: 20121005
  Transmission Date: 20130627
  Serious: Yes (Other)
  Sender: FDA-Public Use
  Company Number: JP-ELI_LILLY_AND_COMPANY-JP201209008069

PATIENT

DRUGS (2)
  1. GEMCITABINE HYDROCHLORIDE [Suspect]
     Indication: PANCREATIC CARCINOMA RECURRENT
     Route: 042
  2. ERLOTINIB [Concomitant]
     Indication: PANCREATIC CARCINOMA RECURRENT

REACTIONS (2)
  - Biliary tract infection [Recovering/Resolving]
  - Diarrhoea [Recovering/Resolving]
